FAERS Safety Report 26102728 (Version 1)
Quarter: 2025Q4

REPORT INFORMATION
  Report Type: Spontaneous
  Country: EU (occurrence: EU)
  Receive Date: 20251128
  Receipt Date: 20251128
  Transmission Date: 20260118
  Serious: Yes (Other)
  Sender: PFIZER
  Company Number: EU-PFIZER INC-PV202500138458

PATIENT
  Age: 77 Year
  Sex: Female

DRUGS (6)
  1. LORLATINIB [Suspect]
     Active Substance: LORLATINIB
     Indication: Lung adenocarcinoma
     Dosage: 100 MG
     Dates: start: 202101
  2. LORLATINIB [Suspect]
     Active Substance: LORLATINIB
     Dosage: 75 MG
     Dates: start: 202103, end: 202104
  3. LORLATINIB [Suspect]
     Active Substance: LORLATINIB
     Dosage: 75 MG
     Dates: start: 202105
  4. PROLIA [Concomitant]
     Active Substance: DENOSUMAB
     Dosage: DOSING NOT PROVIDED
  5. PROLIA [Concomitant]
     Active Substance: DENOSUMAB
     Dosage: 120 MG, MONTHLY
     Dates: start: 201903
  6. DEXAMETHASONE [Concomitant]
     Active Substance: DEXAMETHASONE
     Dosage: UNK
     Dates: start: 202105, end: 202110

REACTIONS (10)
  - Lung adenocarcinoma [Recovered/Resolved]
  - Malignant neoplasm progression [Recovered/Resolved]
  - Radiation necrosis [Unknown]
  - Hypercholesterolaemia [Recovering/Resolving]
  - Nervous system disorder [Recovering/Resolving]
  - Therapeutic response unexpected [Recovering/Resolving]
  - Hepatic enzyme decreased [Recovering/Resolving]
  - Oedema [Recovering/Resolving]
  - Osteoarthritis [Not Recovered/Not Resolved]
  - Back pain [Not Recovered/Not Resolved]

NARRATIVE: CASE EVENT DATE: 20210301
